FAERS Safety Report 5510795-1 (Version None)
Quarter: 2007Q4

REPORT INFORMATION
  Report Type: 
  Country: None (occurrence: None)
  Receive Date: 20071107
  Receipt Date: 20071023
  Transmission Date: 20080405
  Serious: Yes (Other)
  Sender: FDA-Public Use
  Company Number: DSA_30797_2007

PATIENT
  Sex: Female
  Weight: 105.2345 kg

DRUGS (7)
  1. VASOTEC [Suspect]
     Indication: HYPERTENSION
     Dosage: (2.5 MG QD ORAL)
     Route: 048
     Dates: start: 20071002
  2. VASOTEC [Suspect]
     Indication: HYPERTENSION
     Dosage: (15 MG QD ORAL)
     Route: 048
     Dates: start: 20071001
  3. VASOTEC [Suspect]
     Indication: HYPERTENSION
     Dosage: (10 MG QD ORAL)
     Route: 048
     Dates: end: 20050101
  4. VASOTEC [Suspect]
     Indication: HYPERTENSION
     Dosage: (2.5 MG QD ORAL)
     Route: 048
     Dates: start: 20050101, end: 20071001
  5. BUMETANIDE                  (UNKNOWN) [Concomitant]
  6. POTASSIUM CHLORIDE                (UNKNOWN) [Concomitant]
  7. METFORMIN                             (UNKNOWN) [Concomitant]

REACTIONS (6)
  - AMNESIA [None]
  - BLOOD PRESSURE INCREASED [None]
  - DIZZINESS [None]
  - MENTAL IMPAIRMENT [None]
  - PHARMACEUTICAL PRODUCT COMPLAINT [None]
  - TREMOR [None]
